FAERS Safety Report 14231819 (Version 1)
Quarter: 2017Q4

REPORT INFORMATION
  Report Type: Spontaneous
  Country: US (occurrence: US)
  Receive Date: 20171128
  Receipt Date: 20171128
  Transmission Date: 20180321
  Serious: No
  Sender: FDA-Public Use
  Company Number: US-BIOGEN-2017BI00483646

PATIENT
  Sex: Female

DRUGS (1)
  1. PLEGRIDY [Suspect]
     Active Substance: PEGINTERFERON BETA-1A
     Indication: MULTIPLE SCLEROSIS
     Route: 065
     Dates: start: 20160517, end: 20170209

REACTIONS (6)
  - Tenoplasty [Unknown]
  - Post procedural swelling [Unknown]
  - Influenza [Unknown]
  - Nasopharyngitis [Unknown]
  - Post procedural complication [Unknown]
  - Sinusitis [Unknown]
